FAERS Safety Report 9318650 (Version 1)
Quarter: 2013Q2

REPORT INFORMATION
  Report Type: Spontaneous
  Country: GB (occurrence: None)
  Receive Date: 20130524
  Receipt Date: 20130524
  Transmission Date: 20140414
  Serious: Yes (Other)
  Sender: FDA-Public Use
  Company Number: CL-488-2013

PATIENT
  Age: 64 Year
  Sex: Female

DRUGS (1)
  1. METRONIDAZOLE [Suspect]
     Indication: COLITIS ULCERATIVE
     Dosage: 1500MG OD

REACTIONS (5)
  - Neurotoxicity [None]
  - Toxicity to various agents [None]
  - Ataxia [None]
  - Dysarthria [None]
  - Off label use [None]
